FAERS Safety Report 13905312 (Version 1)
Quarter: 2017Q3

REPORT INFORMATION
  Report Type: Spontaneous
  Country: US (occurrence: None)
  Receive Date: 20170821
  Receipt Date: 20170821
  Transmission Date: 20171127
  Serious: Yes (Life-Threatening, Hospitalization)
  Sender: FDA-Public Use
  Company Number: None

PATIENT
  Age: 52 Year
  Sex: Male

DRUGS (1)
  1. LISINOPRIL. [Suspect]
     Active Substance: LISINOPRIL
     Route: 048
     Dates: start: 20120419, end: 20170320

REACTIONS (4)
  - Angioedema [None]
  - Anaphylactic reaction [None]
  - Cardio-respiratory arrest [None]
  - Dysphagia [None]

NARRATIVE: CASE EVENT DATE: 20170320
